FAERS Safety Report 7966290-3 (Version None)
Quarter: 2011Q4

REPORT INFORMATION
  Report Type: 
  Country: None (occurrence: None)
  Receive Date: 20111208
  Receipt Date: 20111205
  Transmission Date: 20120403
  Serious: No
  Sender: FDA-Public Use
  Company Number: US-PFIZER INC-2011221796

PATIENT
  Sex: Female
  Weight: 52.154 kg

DRUGS (3)
  1. HYDROCODONE [Concomitant]
     Indication: PAIN
     Dosage: 100 MG, DAILY
  2. LYRICA [Suspect]
     Dosage: 50 MG, 3X/DAY
     Route: 048
     Dates: start: 20110914
  3. LYRICA [Suspect]
     Indication: NEURALGIA
     Dosage: 50 MG, 3X/DAY
     Route: 048
     Dates: start: 20110201, end: 20110911

REACTIONS (5)
  - DEPRESSION [None]
  - DRUG INEFFECTIVE [None]
  - HYPOAESTHESIA [None]
  - ANXIETY [None]
  - MOOD SWINGS [None]
